FAERS Safety Report 8849343 (Version 5)
Quarter: 2013Q4

REPORT INFORMATION
  Report Type: Report from Study
  Country: JP (occurrence: JP)
  Receive Date: 20121017
  Receipt Date: 20131017
  Transmission Date: 20140711
  Serious: Yes (Other)
  Sender: FDA-Public Use
  Company Number: JP-VERTEX PHARMACEUTICAL INC.-AE-2012-009769

PATIENT
  Age: 65 Year
  Sex: Female

DRUGS (9)
  1. VX-950 (TELAPREVIR) [Suspect]
     Indication: CHRONIC HEPATITIS C
     Dosage: 1500 MG, QD
     Route: 048
     Dates: start: 20120614, end: 20120627
  2. PEGINTRON [Suspect]
     Indication: CHRONIC HEPATITIS C
     Dosage: 80 ?G, QW
     Route: 058
     Dates: start: 20120614, end: 20120920
  3. PEGINTRON [Suspect]
     Dosage: 40 ?G, Q2WK
     Route: 058
     Dates: start: 20121018, end: 20121101
  4. PEGINTRON [Suspect]
     Dosage: 40 ?G/KG, QW
     Route: 058
     Dates: start: 20121108
  5. REBETOL [Suspect]
     Indication: CHRONIC HEPATITIS C
     Dosage: 600 MG, QD
     Route: 048
     Dates: start: 20120614, end: 20120627
  6. REBETOL [Suspect]
     Dosage: 400 MG, QD
     Route: 048
     Dates: start: 20120628, end: 20120829
  7. REBETOL [Suspect]
     Dosage: 400MG AND 600MG, QOD
     Route: 048
     Dates: start: 20120830, end: 20120919
  8. REBETOL [Suspect]
     Dosage: 400 MG, QD
     Route: 048
     Dates: start: 20120920, end: 20121114
  9. REBETOL [Suspect]
     Dosage: 600MG, 400 MG QOD
     Route: 048
     Dates: start: 20121115

REACTIONS (2)
  - Hyperamylasaemia [Recovered/Resolved]
  - Retinopathy [Recovered/Resolved]
